FAERS Safety Report 26108824 (Version 1)
Quarter: 2025Q4

REPORT INFORMATION
  Report Type: Spontaneous
  Country: US (occurrence: None)
  Receive Date: 20251128
  Receipt Date: 20251128
  Transmission Date: 20260117
  Serious: Yes (Hospitalization)
  Sender: FDA-CTU
  Company Number: None

PATIENT
  Age: 54 Year
  Sex: Female
  Weight: 96.52 kg

DRUGS (6)
  1. SACITUZUMAB GOVITECAN [Suspect]
     Active Substance: SACITUZUMAB GOVITECAN
     Indication: Ovarian cancer
     Dosage: OTHER FREQUENCY : D1 AND D8/21 DAYS;?
     Route: 042
     Dates: start: 20250925, end: 20251112
  2. CISPLATIN [Suspect]
     Active Substance: CISPLATIN
     Indication: Ovarian cancer
     Dosage: OTHER FREQUENCY : D1 AND D8/21 DAYS;?
     Route: 042
     Dates: start: 20250925, end: 20251112
  3. diphenhyd/lidocaine/mag,Al/sim (MAGIC MOUTHWASH) [Concomitant]
     Dates: start: 20251112
  4. PROCHLORPERAZINE [Concomitant]
     Active Substance: PROCHLORPERAZINE
     Dates: start: 20251024
  5. POTASSIUM CHLORIDE [Concomitant]
     Active Substance: POTASSIUM CHLORIDE
     Dates: start: 20251112
  6. ONDANSETRON [Concomitant]
     Active Substance: ONDANSETRON
     Dates: start: 20250926

REACTIONS (9)
  - Nausea [None]
  - Vomiting [None]
  - Acute kidney injury [None]
  - Dehydration [None]
  - Hypomagnesaemia [None]
  - Hypokalaemia [None]
  - Hyperglycaemia [None]
  - Pancytopenia [None]
  - Stomatitis [None]

NARRATIVE: CASE EVENT DATE: 20251123
